FAERS Safety Report 15889736 (Version 1)
Quarter: 2019Q1

REPORT INFORMATION
  Report Type: Spontaneous
  Country: FR (occurrence: FR)
  Receive Date: 20190130
  Receipt Date: 20190130
  Transmission Date: 20190417
  Serious: Yes (Life-Threatening)
  Sender: FDA-Public Use
  Company Number: FR-TEVA-2019-FR-1004219

PATIENT
  Age: 49 Year
  Sex: Female
  Weight: 62 kg

DRUGS (3)
  1. OXALIPLATINE [Concomitant]
     Active Substance: OXALIPLATIN
     Indication: COLON CANCER
     Route: 042
     Dates: start: 20171207, end: 20171207
  2. FLUOROURACILE [Suspect]
     Active Substance: FLUOROURACIL
     Indication: COLON CANCER
     Route: 042
     Dates: start: 20171207, end: 20171207
  3. FLUOROURACILE [Suspect]
     Active Substance: FLUOROURACIL
     Route: 042
     Dates: start: 20171207, end: 20171207

REACTIONS (1)
  - Arteriospasm coronary [Recovered/Resolved]

NARRATIVE: CASE EVENT DATE: 20171208
